FAERS Safety Report 23346700 (Version 1)
Quarter: 2023Q4

REPORT INFORMATION
  Report Type: Spontaneous
  Country: US (occurrence: US)
  Receive Date: 20231228
  Receipt Date: 20231228
  Transmission Date: 20240110
  Serious: Yes (Other)
  Sender: FDA-Public Use
  Company Number: US-Calliditas-2023CAL01668

PATIENT
  Age: 73 Year
  Sex: Male

DRUGS (4)
  1. TARPEYO [Suspect]
     Active Substance: BUDESONIDE
     Indication: Haematuria
     Route: 048
     Dates: start: 20230831
  2. ELIQUIS [Concomitant]
     Active Substance: APIXABAN
  3. AMLODIPINE [Concomitant]
     Active Substance: AMLODIPINE BESYLATE
  4. DILTIAZEM [Concomitant]
     Active Substance: DILTIAZEM
     Dosage: TIME INTERVAL:

REACTIONS (8)
  - Joint swelling [Unknown]
  - Cushingoid [Unknown]
  - Off label use [Unknown]
  - Glaucoma [Unknown]
  - Peripheral swelling [Unknown]
  - Acne [Unknown]
  - Dyspnoea exertional [Unknown]
  - Atrial fibrillation [Unknown]
